FAERS Safety Report 6112750-X (Version None)
Quarter: 2009Q1

REPORT INFORMATION
  Report Type: 
  Country: None (occurrence: None)
  Receive Date: 20090312
  Receipt Date: 20090309
  Transmission Date: 20090719
  Serious: Yes (Other)
  Sender: FDA-Public Use
  Company Number: NL-ASTRAZENECA-2009AC00797

PATIENT
  Age: 22270 Day
  Sex: Male

DRUGS (4)
  1. ENTOCORT EC [Suspect]
     Indication: COLITIS COLLAGENOUS
     Route: 048
     Dates: start: 20090201, end: 20090301
  2. ENTOCORT EC [Suspect]
     Route: 048
     Dates: start: 20090301
  3. PANTOZOL [Concomitant]
  4. COSOPT [Concomitant]
     Indication: CATARACT
     Route: 047

REACTIONS (2)
  - FACIAL NEURALGIA [None]
  - FACIAL PALSY [None]
